FAERS Safety Report 5900415-6 (Version None)
Quarter: 2008Q3

REPORT INFORMATION
  Report Type: 
  Country: None (occurrence: None)
  Receive Date: 20080926
  Receipt Date: 20080916
  Transmission Date: 20090109
  Serious: Yes (Death, Hospitalization)
  Sender: FDA-Public Use
  Company Number: JP-PFIZER INC-2008048982

PATIENT
  Age: 90 Year
  Sex: Female

DRUGS (1)
  1. ZYVOX [Suspect]
     Indication: INFECTION
     Route: 042

REACTIONS (3)
  - DISSEMINATED INTRAVASCULAR COAGULATION [None]
  - MULTI-ORGAN FAILURE [None]
  - PLATELET COUNT DECREASED [None]
